FAERS Safety Report 11676947 (Version 1)
Quarter: 2015Q4

REPORT INFORMATION
  Report Type: Spontaneous
  Country: US (occurrence: US)
  Receive Date: 20151028
  Receipt Date: 20151028
  Transmission Date: 20160304
  Serious: No
  Sender: FDA-Public Use
  Company Number: US-BAYER-2015-447171

PATIENT
  Sex: Male

DRUGS (11)
  1. SOMA [Concomitant]
     Active Substance: CARISOPRODOL
     Dosage: 1 DF, TID
     Route: 048
  2. ALBUTEROL. [Concomitant]
     Active Substance: ALBUTEROL
     Dosage: 2 DF, QID
  3. PROAIR HFA [Concomitant]
     Active Substance: ALBUTEROL SULFATE
     Indication: COUGH
     Dosage: 90 MCG/ML, QID
  4. ROXICODONE [Concomitant]
     Active Substance: OXYCODONE HYDROCHLORIDE
     Dosage: 1 DF, QID
  5. LYRICA [Concomitant]
     Active Substance: PREGABALIN
     Dosage: 1 DF, TID
  6. GABAPENTIN. [Concomitant]
     Active Substance: GABAPENTIN
     Dosage: 2 DF, QID
  7. ASPIRIN. [Concomitant]
     Active Substance: ASPIRIN
     Dosage: 81 MG, ONCE
  8. ALEVE [Suspect]
     Active Substance: NAPROXEN SODIUM
  9. PROAIR HFA [Concomitant]
     Active Substance: ALBUTEROL SULFATE
     Indication: WHEEZING
  10. OXYCODONE [Concomitant]
     Active Substance: OXYCODONE
     Dosage: 1 DF, BID
  11. METFORMIN [Concomitant]
     Active Substance: METFORMIN HYDROCHLORIDE
     Dosage: 1 DF, BID

REACTIONS (1)
  - Hypersensitivity [None]
